FAERS Safety Report 10455522 (Version 1)
Quarter: 2014Q3

REPORT INFORMATION
  Report Type: Report from Study
  Country: DE (occurrence: DE)
  Receive Date: 20140916
  Receipt Date: 20140916
  Transmission Date: 20150326
  Serious: Yes (Congenital Anomaly, Other)
  Sender: FDA-Public Use
  Company Number: DE-AUROBINDO-AUR-APL-2014-09847

PATIENT

DRUGS (2)
  1. MOXIFLOXACIN 400MG BAYER [Suspect]
     Active Substance: MOXIFLOXACIN
     Indication: PRODUCT USED FOR UNKNOWN INDICATION
     Dosage: 400 MG, DAILY
     Route: 064
  2. MYRTOL [Suspect]
     Active Substance: HERBALS
     Indication: PRODUCT USED FOR UNKNOWN INDICATION
     Route: 064

REACTIONS (5)
  - Arnold-Chiari malformation [Unknown]
  - Maternal drugs affecting foetus [None]
  - Meningomyelocele [Unknown]
  - Maternal exposure during pregnancy [Unknown]
  - Premature baby [Unknown]
